FAERS Safety Report 23608190 (Version 2)
Quarter: 2024Q2

REPORT INFORMATION
  Report Type: Report from Study
  Country: US (occurrence: US)
  Receive Date: 20240307
  Receipt Date: 20240513
  Transmission Date: 20240716
  Serious: No
  Sender: FDA-Public Use
  Company Number: US-AstraZeneca-CH-00578374A

PATIENT
  Sex: Female

DRUGS (1)
  1. ULTOMIRIS [Suspect]
     Active Substance: RAVULIZUMAB-CWVZ
     Indication: Paroxysmal nocturnal haemoglobinuria
     Dosage: UNK
     Route: 042
     Dates: start: 20200610

REACTIONS (7)
  - Weight increased [Not Recovered/Not Resolved]
  - Paraesthesia [Unknown]
  - Skin laxity [Unknown]
  - Pain in extremity [Recovered/Resolved]
  - Musculoskeletal stiffness [Unknown]
  - Arthritis [Unknown]
  - Fatigue [Recovering/Resolving]
